FAERS Safety Report 24357928 (Version 6)
Quarter: 2024Q4

REPORT INFORMATION
  Report Type: Report from Study
  Country: US (occurrence: US)
  Receive Date: 20240924
  Receipt Date: 20241129
  Transmission Date: 20250115
  Serious: Yes (Hospitalization, Other)
  Sender: NOVARTIS
  Company Number: US-002147023-NVSC2024US141418

PATIENT
  Sex: Male

DRUGS (2)
  1. KESIMPTA [Suspect]
     Active Substance: OFATUMUMAB
     Indication: Multiple sclerosis
     Dosage: 20 MG, QMO
     Route: 058
  2. KESIMPTA [Suspect]
     Active Substance: OFATUMUMAB
     Dosage: 20 MG, Q4W
     Route: 058
     Dates: start: 20240615

REACTIONS (12)
  - Pneumonia [Recovered/Resolved]
  - Atrial fibrillation [Recovering/Resolving]
  - Pericardial effusion [Unknown]
  - Fatigue [Recovered/Resolved]
  - Influenza like illness [Recovered/Resolved]
  - Night sweats [Recovered/Resolved]
  - Pulmonary oedema [Recovering/Resolving]
  - Pericarditis constrictive [Unknown]
  - Pyrexia [Recovering/Resolving]
  - Cough [Recovering/Resolving]
  - Fatigue [Unknown]
  - Device malfunction [Unknown]
